FAERS Safety Report 4937121-0 (Version None)
Quarter: 2006Q1

REPORT INFORMATION
  Report Type: 
  Country: None (occurrence: None)
  Receive Date: 20060307
  Receipt Date: 20060307
  Transmission Date: 20060701
  Serious: Yes (Other)
  Sender: FDA-Public Use
  Company Number: None

PATIENT
  Age: 69 Year
  Sex: Female
  Weight: 83.4619 kg

DRUGS (1)
  1. TEQUIN [Suspect]
     Indication: BRONCHITIS
     Dosage: 400MG  ONE DAILY  P.O.
     Route: 048
     Dates: start: 20060218, end: 20060224

REACTIONS (1)
  - BLOOD GLUCOSE INCREASED [None]
